FAERS Safety Report 19432147 (Version 1)
Quarter: 2021Q2

REPORT INFORMATION
  Report Type: Spontaneous
  Country: CA (occurrence: CA)
  Receive Date: 20210618
  Receipt Date: 20210618
  Transmission Date: 20210717
  Serious: Yes (Hospitalization, Other)
  Sender: FDA-Public Use
  Company Number: CA-TEVA-2021-CA-1922151

PATIENT
  Age: 53 Year
  Sex: Female

DRUGS (1)
  1. ZOLEDRONIC ACID INJECTION [Suspect]
     Active Substance: ZOLEDRONIC ACID
     Indication: PRODUCT USED FOR UNKNOWN INDICATION
     Route: 042

REACTIONS (8)
  - Arthralgia [Not Recovered/Not Resolved]
  - Heart rate increased [Not Recovered/Not Resolved]
  - Eye swelling [Not Recovered/Not Resolved]
  - Gastritis [Not Recovered/Not Resolved]
  - Pyrexia [Not Recovered/Not Resolved]
  - Drug hypersensitivity [Not Recovered/Not Resolved]
  - Pancreatitis [Not Recovered/Not Resolved]
  - Headache [Not Recovered/Not Resolved]
